FAERS Safety Report 12520135 (Version 2)
Quarter: 2016Q3

REPORT INFORMATION
  Report Type: Spontaneous
  Country: JP (occurrence: JP)
  Receive Date: 20160701
  Receipt Date: 20160701
  Transmission Date: 20161109
  Serious: Yes (Other)
  Sender: FDA-Public Use
  Company Number: JP-BRISTOL-MYERS SQUIBB COMPANY-BMS-2016-053040

PATIENT
  Sex: Female

DRUGS (1)
  1. KENALOG IN ORABASE [Suspect]
     Active Substance: TRIAMCINOLONE ACETONIDE
     Indication: PAPULE
     Route: 061

REACTIONS (1)
  - Visual impairment [Unknown]
